FAERS Safety Report 24556770 (Version 2)
Quarter: 2024Q4

REPORT INFORMATION
  Report Type: Report from Study
  Country: US (occurrence: US)
  Receive Date: 20241028
  Receipt Date: 20241112
  Transmission Date: 20250115
  Serious: Yes (Disabling, Other)
  Sender: AIMMUNE
  Company Number: US-ZENPEP LLC-2024AIMT01488

PATIENT

DRUGS (2)
  1. ZENPEP [Suspect]
     Active Substance: PANCRELIPASE AMYLASE\PANCRELIPASE LIPASE\PANCRELIPASE PROTEASE
     Indication: Pancreatic failure
     Dosage: 20000 UPS 100CT CAPSULES
     Route: 048
     Dates: start: 2022
  2. ZENPEP [Suspect]
     Active Substance: PANCRELIPASE AMYLASE\PANCRELIPASE LIPASE\PANCRELIPASE PROTEASE
     Dosage: 20000 UPS UNITS, ONCE, LAST DOSE PRIOR TO EVENT
     Route: 048

REACTIONS (2)
  - Disability [Unknown]
  - Pain [Unknown]
